FAERS Safety Report 7355774-7 (Version None)
Quarter: 2011Q1

REPORT INFORMATION
  Report Type: 
  Country: None (occurrence: None)
  Receive Date: 20110316
  Receipt Date: 20110309
  Transmission Date: 20110831
  Serious: Yes (Life-Threatening, Disabling)
  Sender: FDA-Public Use
  Company Number: US-MERCK-1103USA01400

PATIENT
  Age: 42 Year
  Sex: Female

DRUGS (10)
  1. MAGNESIUM (UNSPECIFIED) [Concomitant]
     Route: 065
  2. OMEGA-3 MARINE TRIGLYCERIDES [Concomitant]
     Route: 065
  3. EUFLEX [Concomitant]
     Route: 065
  4. CYANOCOBALAMIN [Concomitant]
     Route: 065
  5. REGLAN [Concomitant]
     Route: 065
  6. ZOCOR [Suspect]
     Indication: BLOOD CHOLESTEROL
     Route: 048
     Dates: start: 20101101, end: 20110203
  7. VITAMIN D (UNSPECIFIED) [Concomitant]
     Route: 065
  8. TORADOL [Concomitant]
     Route: 030
  9. NORVASC [Concomitant]
     Route: 065
  10. ETOLAC (ETODOLAC) [Concomitant]
     Route: 065

REACTIONS (3)
  - VISUAL IMPAIRMENT [None]
  - DEPRESSION [None]
  - AUTOIMMUNE DISORDER [None]
